FAERS Safety Report 5141691-X (Version None)
Quarter: 2006Q4

REPORT INFORMATION
  Report Type: 
  Country: None (occurrence: None)
  Receive Date: 20061026
  Receipt Date: 20061019
  Transmission Date: 20070319
  Serious: Yes (Death)
  Sender: FDA-Public Use
  Company Number: 163-21880-06081073

PATIENT
  Age: 57 Year
  Sex: Male

DRUGS (1)
  1. REVLIMID [Suspect]
     Indication: MYELODYSPLASTIC SYNDROME
     Dosage: 10 MG, 1 IN 1 D, ORAL
     Route: 048
     Dates: start: 20060711, end: 20060101

REACTIONS (2)
  - ACUTE LEUKAEMIA [None]
  - MALIGNANT NEOPLASM PROGRESSION [None]
